FAERS Safety Report 15595176 (Version 1)
Quarter: 2018Q4

REPORT INFORMATION
  Report Type: Spontaneous
  Country: US (occurrence: US)
  Receive Date: 20181107
  Receipt Date: 20181107
  Transmission Date: 20190205
  Serious: Yes (Hospitalization, Other)
  Sender: FDA-Public Use
  Company Number: US-PFIZER INC-2018451589

PATIENT
  Age: 27 Year
  Sex: Male
  Weight: 79.38 kg

DRUGS (2)
  1. GABAPENTIN. [Suspect]
     Active Substance: GABAPENTIN
     Indication: PANIC ATTACK
     Dosage: UNK, 1X/DAY (EVERY NIGHT )
     Route: 048
     Dates: start: 20181019, end: 201810
  2. GABAPENTIN. [Suspect]
     Active Substance: GABAPENTIN
     Dosage: 300 MG, 2X/DAY
     Route: 048
     Dates: start: 201810, end: 20181026

REACTIONS (2)
  - Off label use [Recovered/Resolved]
  - Pancreatitis [Unknown]

NARRATIVE: CASE EVENT DATE: 20181019
